FAERS Safety Report 18175718 (Version 2)
Quarter: 2020Q3

REPORT INFORMATION
  Report Type: Spontaneous
  Country: US (occurrence: US)
  Receive Date: 20200820
  Receipt Date: 20200910
  Transmission Date: 20201103
  Serious: Yes (Hospitalization)
  Sender: FDA-Public Use
  Company Number: US-LUPIN PHARMACEUTICALS INC.-2020-03588

PATIENT
  Age: 70 Year
  Sex: Male

DRUGS (25)
  1. METHYLPREDNISOLONE. [Suspect]
     Active Substance: METHYLPREDNISOLONE
     Dosage: 1 MILLIGRAM
     Route: 042
  2. HYDROCODONE/ACETAMINOPHEN [Concomitant]
     Active Substance: ACETAMINOPHEN\HYDROCODONE
     Dosage: 650 MILLIGRAM, EVERY 6 HOURS (AS A COCKTAIL WITH ONDANSETRON AND DIPHENHYDRAMIE)
     Route: 065
  3. LIDOPROFEN [Suspect]
     Active Substance: KETAMINE\KETOPROFEN\LIDOCAINE
     Indication: PAIN MANAGEMENT
     Dosage: UNK UNK, QD, AS NEEDED
     Route: 061
  4. OXCARBAMAZEPINE [Suspect]
     Active Substance: OXCARBAZEPINE
     Dosage: 300 MILLIGRAM, BID
     Route: 065
  5. PREDNISONE. [Suspect]
     Active Substance: PREDNISONE
     Indication: PAIN MANAGEMENT
     Dosage: 60 MILLIGRAM, QD
     Route: 065
  6. MAGNESIUM [Suspect]
     Active Substance: MAGNESIUM
     Indication: PAIN MANAGEMENT
     Dosage: 2 GRAM
     Route: 065
  7. MORPHINE [Suspect]
     Active Substance: MORPHINE
     Indication: PAIN MANAGEMENT
     Dosage: 4 MILLIGRAM
     Route: 065
  8. ZOFRAN [Suspect]
     Active Substance: ONDANSETRON HYDROCHLORIDE
     Indication: NAUSEA
     Dosage: AS A COCKTAIL WITH DIPHENHYDRAMINE AND PARACETAMOL
     Route: 065
  9. PARACETAMOL [Suspect]
     Active Substance: ACETAMINOPHEN
     Indication: PAIN MANAGEMENT
     Dosage: 650 MILLIGRAM (EVERY 6 HOURS, AS A COCKTAIL WITH ONDANSETRON AND DIPHENHYDRAMINE)
     Route: 048
  10. HYDROCODONE/ACETAMINOPHEN [Concomitant]
     Active Substance: ACETAMINOPHEN\HYDROCODONE
     Indication: PAIN MANAGEMENT
     Dosage: 7.5 TO 325 MG AS NEEDED
     Route: 065
  11. NORTRIPTYLINE [Concomitant]
     Active Substance: NORTRIPTYLINE
     Indication: PAIN MANAGEMENT
     Dosage: AT BEDTIME
     Route: 065
  12. NUBAIN [Suspect]
     Active Substance: NALBUPHINE HYDROCHLORIDE
     Indication: PAIN MANAGEMENT
     Dosage: UNK, QD
     Route: 065
  13. PREGABALIN. [Suspect]
     Active Substance: PREGABALIN
     Indication: PAIN MANAGEMENT
     Dosage: 100 MILLIGRAM, QD
     Route: 065
  14. GABAPENTIN. [Suspect]
     Active Substance: GABAPENTIN
     Indication: PAIN MANAGEMENT
     Dosage: 600 MILLIGRAM, TID, FOR MORE THAN 1 MONTH
     Route: 065
  15. OXCARBAMAZEPINE [Suspect]
     Active Substance: OXCARBAZEPINE
     Indication: PAIN MANAGEMENT
     Dosage: 150 MILLIGRAM, BID
     Route: 065
  16. CYCLOBENZAPRINE. [Suspect]
     Active Substance: CYCLOBENZAPRINE
     Indication: PAIN MANAGEMENT
     Dosage: 10 MILLIGRAM, TID
     Route: 065
  17. LIDOCAINE. [Concomitant]
     Active Substance: LIDOCAINE
     Indication: PAIN MANAGEMENT
     Dosage: 1 DOSAGE FORM, QD
     Route: 065
  18. LEVETIRACETAM. [Suspect]
     Active Substance: LEVETIRACETAM
     Indication: PAIN MANAGEMENT
     Dosage: 500 MILLIGRAM, TID
     Route: 065
  19. TRAMADOL. [Suspect]
     Active Substance: TRAMADOL
     Indication: PAIN MANAGEMENT
     Dosage: 50 MILLIGRAM, TID
     Route: 048
  20. INDOMETHACIN [INDOMETACIN] [Suspect]
     Active Substance: INDOMETHACIN
     Indication: PAIN MANAGEMENT
     Dosage: 25 MILLIGRAM, TID
     Route: 065
  21. METHOCARBAMOL. [Suspect]
     Active Substance: METHOCARBAMOL
     Indication: PAIN MANAGEMENT
     Dosage: 500 MILLIGRAM, TID, AS NEEDED
     Route: 065
  22. METHYLPREDNISOLONE. [Suspect]
     Active Substance: METHYLPREDNISOLONE
     Indication: PAIN MANAGEMENT
     Dosage: 1 GRAM
     Route: 065
  23. ZOFRAN [Suspect]
     Active Substance: ONDANSETRON HYDROCHLORIDE
     Indication: PAIN MANAGEMENT
     Dosage: 4 MILLIGRAM
     Route: 065
  24. DIPHENHYDRAMIN [Suspect]
     Active Substance: DIPHENHYDRAMINE
     Indication: PAIN MANAGEMENT
     Dosage: AS A COCKTAIL WITH ONDANSETRON AND PARACETAMOL
     Route: 065
  25. KETAMINE [Concomitant]
     Active Substance: KETAMINE
     Indication: PAIN MANAGEMENT
     Dosage: UNK
     Route: 042

REACTIONS (1)
  - Drug ineffective [Unknown]
